FAERS Safety Report 9948186 (Version 2)
Quarter: 2014Q1

REPORT INFORMATION
  Report Type: Report from Study
  Country: US (occurrence: US)
  Receive Date: 20140303
  Receipt Date: 20140303
  Transmission Date: 20141002
  Serious: Yes (Other)
  Sender: FDA-Public Use
  Company Number: US-ABBVIE-13P-163-1031058-00

PATIENT
  Age: 58 Year
  Sex: Female
  Weight: 70.82 kg

DRUGS (6)
  1. HUMIRA PEN [Suspect]
     Indication: PSORIATIC ARTHROPATHY
     Dates: start: 20120727, end: 20121220
  2. HYDROCODONE [Concomitant]
     Indication: PAIN
     Dosage: AS REQUIRED
  3. TRAMADOL [Concomitant]
     Indication: PAIN
     Dosage: 50 MG 1-2 EVERY 8 HRS, AS NEEDED
  4. NORCO [Concomitant]
     Indication: HYPERTENSION
     Dosage: 10 MG DAILY
  5. SEROQUEL [Concomitant]
     Indication: INSOMNIA
     Dosage: AT BEDTIME; WHEN NEEDED
  6. NORVASC [Concomitant]
     Indication: PRODUCT USED FOR UNKNOWN INDICATION

REACTIONS (6)
  - Hepatitis C [Not Recovered/Not Resolved]
  - Arthralgia [Not Recovered/Not Resolved]
  - Joint swelling [Not Recovered/Not Resolved]
  - Neck pain [Not Recovered/Not Resolved]
  - C-reactive protein increased [Not Recovered/Not Resolved]
  - Pain [Not Recovered/Not Resolved]
